FAERS Safety Report 8021394-4 (Version None)
Quarter: 2012Q1

REPORT INFORMATION
  Report Type: 
  Country: None (occurrence: None)
  Receive Date: 20120104
  Receipt Date: 20120103
  Transmission Date: 20120608
  Serious: Yes (Hospitalization, Other)
  Sender: FDA-Public Use
  Company Number: IN-PFIZER INC-2011287310

PATIENT
  Age: 76 Year
  Sex: Male

DRUGS (1)
  1. SUTENT [Suspect]
     Indication: METASTATIC RENAL CELL CARCINOMA
     Dosage: 50 MG, 1X/DAY
     Route: 048
     Dates: start: 20110908

REACTIONS (6)
  - EYE SWELLING [None]
  - PRURITUS GENITAL [None]
  - CHOLELITHIASIS [None]
  - GENITAL RASH [None]
  - ABDOMINAL PAIN [None]
  - MOUTH ULCERATION [None]
